FAERS Safety Report 20800047 (Version 2)
Quarter: 2022Q2

REPORT INFORMATION
  Report Type: Spontaneous
  Country: US (occurrence: US)
  Receive Date: 20220509
  Receipt Date: 20220531
  Transmission Date: 20220721
  Serious: No
  Sender: FDA-Public Use
  Company Number: US-BAYER-2022A065267

PATIENT
  Sex: Male

DRUGS (2)
  1. KERENDIA [Suspect]
     Active Substance: FINERENONE
     Dosage: 10 MG
  2. KERENDIA [Suspect]
     Active Substance: FINERENONE
     Dosage: TITRATED UP TO 20MG AT 4 WEEK POTASSIUM CHECK.

REACTIONS (1)
  - Albumin urine present [None]

NARRATIVE: CASE EVENT DATE: 20220315
